FAERS Safety Report 15677791 (Version 6)
Quarter: 2019Q1

REPORT INFORMATION
  Report Type: Spontaneous
  Country: PT (occurrence: PT)
  Receive Date: 20181130
  Receipt Date: 20190128
  Transmission Date: 20190417
  Serious: Yes (Other)
  Sender: FDA-Public Use
  Company Number: PT-PFIZER INC-2018487490

PATIENT
  Age: 58 Year
  Sex: Female

DRUGS (3)
  1. BORTEZOMIB. [Suspect]
     Active Substance: BORTEZOMIB
     Indication: LIGHT CHAIN DISEASE
     Dosage: 6 CYCLES
  2. THALIDOMIDE [Suspect]
     Active Substance: THALIDOMIDE
     Indication: LIGHT CHAIN DISEASE
     Dosage: 6 CYCLES
  3. DEXAMETHASONE. [Suspect]
     Active Substance: DEXAMETHASONE
     Indication: LIGHT CHAIN DISEASE
     Dosage: 6 CYCLES

REACTIONS (3)
  - Congestive cardiomyopathy [Unknown]
  - Neuropathy peripheral [Recovering/Resolving]
  - Ventricular dysfunction [Unknown]
